FAERS Safety Report 18947288 (Version 3)
Quarter: 2021Q2

REPORT INFORMATION
  Report Type: Spontaneous
  Country: JP (occurrence: JP)
  Receive Date: 20210226
  Receipt Date: 20210413
  Transmission Date: 20210717
  Serious: Yes (Other)
  Sender: FDA-Public Use
  Company Number: JP-PFIZER INC-2021201519

PATIENT
  Age: 78 Year
  Sex: Male
  Weight: 54.7 kg

DRUGS (6)
  1. BRAFTOVI [Suspect]
     Active Substance: ENCORAFENIB
     Dosage: 225 MG, EVERYDAY
     Route: 048
     Dates: start: 20210219
  2. MEKTOVI [Suspect]
     Active Substance: BINIMETINIB
     Dosage: 30 MG, Q12H
     Route: 048
     Dates: start: 20210219
  3. ERBITUX [Suspect]
     Active Substance: CETUXIMAB
     Dosage: 640 MG, EVERYDAY
     Route: 041
     Dates: start: 20210209, end: 20210210
  4. ERBITUX [Suspect]
     Active Substance: CETUXIMAB
     Dosage: 390 MG, EVERYDAY
     Route: 041
     Dates: start: 20210219
  5. BRAFTOVI [Suspect]
     Active Substance: ENCORAFENIB
     Indication: COLON CANCER
     Dosage: 300 MG, EVERYDAY
     Route: 048
     Dates: start: 20210209, end: 20210210
  6. MEKTOVI [Suspect]
     Active Substance: BINIMETINIB
     Indication: COLON CANCER
     Dosage: 45 MG, Q12H
     Route: 048
     Dates: start: 20210209, end: 20210210

REACTIONS (3)
  - Serous retinal detachment [Recovering/Resolving]
  - Dermatitis acneiform [Not Recovered/Not Resolved]
  - Blood creatine phosphokinase increased [Recovering/Resolving]

NARRATIVE: CASE EVENT DATE: 20210210
